FAERS Safety Report 11647651 (Version 1)
Quarter: 2015Q4

REPORT INFORMATION
  Report Type: Spontaneous
  Country: US (occurrence: US)
  Receive Date: 20151021
  Receipt Date: 20151021
  Transmission Date: 20160304
  Serious: Yes (Other)
  Sender: FDA-Public Use
  Company Number: US-TEVA-560438USA

PATIENT
  Age: 55 Year
  Sex: Female
  Weight: 104.87 kg

DRUGS (2)
  1. PROVERA [Suspect]
     Active Substance: MEDROXYPROGESTERONE ACETATE
  2. ESTRACE [Suspect]
     Active Substance: ESTRADIOL
     Dates: end: 20140917

REACTIONS (5)
  - Uterine cervix stenosis [Unknown]
  - Cervicitis [Unknown]
  - Genital herpes [Unknown]
  - Postmenopausal haemorrhage [Recovered/Resolved]
  - Vaginal discharge [Unknown]

NARRATIVE: CASE EVENT DATE: 201212
